FAERS Safety Report 18454308 (Version 2)
Quarter: 2020Q4

REPORT INFORMATION
  Report Type: Report from Study
  Country: CA (occurrence: CA)
  Receive Date: 20201102
  Receipt Date: 20201208
  Transmission Date: 20210114
  Serious: Yes (Hospitalization, Other)
  Sender: FDA-Public Use
  Company Number: CA-JNJFOC-20200846391

PATIENT
  Age: 57 Year
  Sex: Female
  Weight: 81 kg

DRUGS (2)
  1. REMICADE [Suspect]
     Active Substance: INFLIXIMAB
     Route: 042
  2. REMICADE [Suspect]
     Active Substance: INFLIXIMAB
     Indication: HIDRADENITIS
     Route: 042
     Dates: start: 20200521

REACTIONS (10)
  - Diarrhoea [Unknown]
  - Staphylococcal infection [Unknown]
  - Psoriasis [Not Recovered/Not Resolved]
  - Cellulitis [Recovering/Resolving]
  - Fatigue [Unknown]
  - Hidradenitis [Not Recovered/Not Resolved]
  - Eczema [Recovering/Resolving]
  - Urinary tract infection [Unknown]
  - Magnetic resonance imaging abnormal [Unknown]
  - Stress [Unknown]

NARRATIVE: CASE EVENT DATE: 202007
